FAERS Safety Report 24986720 (Version 1)
Quarter: 2025Q1

REPORT INFORMATION
  Report Type: Spontaneous
  Country: US (occurrence: US)
  Receive Date: 20250219
  Receipt Date: 20250219
  Transmission Date: 20250409
  Serious: Yes (Other)
  Sender: ESPERION THERAPEUTICS
  Company Number: US-ESPERION THERAPEUTICS, INC-2025USA00224

PATIENT

DRUGS (8)
  1. NEXLIZET [Suspect]
     Active Substance: BEMPEDOIC ACID\EZETIMIBE
     Indication: Low density lipoprotein increased
     Dosage: 1 DOSAGE FORM, QD (180 MG/10 MG ONCE DAILY BY MOUTH)
     Route: 048
     Dates: start: 2023, end: 2023
  2. NEXLIZET [Suspect]
     Active Substance: BEMPEDOIC ACID\EZETIMIBE
     Indication: High density lipoprotein decreased
     Dosage: 1 DOSAGE FORM, QD (180 MG/10 MG ONCE DAILY BY MOUTH)
     Route: 048
     Dates: end: 202502
  3. NEXLIZET [Suspect]
     Active Substance: BEMPEDOIC ACID\EZETIMIBE
     Indication: Drug intolerance
  4. LISINOPRIL [Suspect]
     Active Substance: LISINOPRIL
     Indication: Product used for unknown indication
     Route: 065
  5. LISINOPRIL [Suspect]
     Active Substance: LISINOPRIL
     Route: 065
     Dates: end: 202502
  6. VITAMIN D [Concomitant]
     Active Substance: VITAMIN D NOS
     Route: 065
  7. JWH-018 [Concomitant]
     Active Substance: JWH-018
     Route: 065
  8. MAGNESIUM [Concomitant]
     Active Substance: MAGNESIUM
     Route: 065

REACTIONS (7)
  - Heart valve incompetence [Unknown]
  - Muscle contractions involuntary [Recovering/Resolving]
  - Muscle twitching [Recovering/Resolving]
  - Essential tremor [Recovering/Resolving]
  - Muscle atrophy [Unknown]
  - Hypertension [Unknown]
  - Muscle spasms [Recovering/Resolving]

NARRATIVE: CASE EVENT DATE: 20230101
